FAERS Safety Report 23139486 (Version 1)
Quarter: 2023Q4

REPORT INFORMATION
  Report Type: Spontaneous
  Country: US (occurrence: None)
  Receive Date: 20231102
  Receipt Date: 20231102
  Transmission Date: 20240110
  Serious: Yes (Hospitalization)
  Sender: FDA-Public Use
  Company Number: None

PATIENT
  Sex: Female

DRUGS (1)
  1. HYQVIA [Suspect]
     Active Substance: HUMAN IMMUNOGLOBULIN G\HYALURONIDASE (HUMAN RECOMBINANT)
     Indication: Immunodeficiency
     Dosage: OTHER STRENGTH : 20GM/200ML;?FREQUENCY : MONTHLY;?
     Route: 058
     Dates: start: 202211

REACTIONS (3)
  - Pneumonia [None]
  - Cardiac disorder [None]
  - Asthma [None]

NARRATIVE: CASE EVENT DATE: 20231029
